FAERS Safety Report 12434980 (Version 2)
Quarter: 2017Q2

REPORT INFORMATION
  Report Type: Spontaneous
  Country: US (occurrence: US)
  Receive Date: 20160603
  Receipt Date: 20170607
  Transmission Date: 20170830
  Serious: No
  Sender: FDA-Public Use
  Company Number: US-ROCHE-1548313

PATIENT
  Sex: Female

DRUGS (2)
  1. XELODA [Suspect]
     Active Substance: CAPECITABINE
     Dosage: 2X DAILY FOR 7 DAYS ON, 7 DAYS OFF AND REPEAT
     Route: 048
     Dates: start: 20131102
  2. XELODA [Suspect]
     Active Substance: CAPECITABINE
     Indication: NEOPLASM MALIGNANT
     Dosage: 7 DAYS ON 7 DAYS OFF
     Route: 048
     Dates: start: 20131101

REACTIONS (5)
  - Pruritus [Unknown]
  - Rash [Unknown]
  - Erythema [Unknown]
  - Pain in extremity [Unknown]
  - Sensory disturbance [Unknown]
